FAERS Safety Report 4560875-2 (Version None)
Quarter: 2005Q1

REPORT INFORMATION
  Report Type: 
  Country: None (occurrence: None)
  Receive Date: 20050121
  Receipt Date: 20050111
  Transmission Date: 20050727
  Serious: No
  Sender: FDA-Public Use
  Company Number: 2005UW00530

PATIENT
  Sex: Male

DRUGS (3)
  1. NEXIUM [Suspect]
     Dosage: 40 MG QD PO
     Route: 048
  2. PRILOSEC [Concomitant]
  3. AXID [Concomitant]

REACTIONS (1)
  - DEMENTIA ALZHEIMER'S TYPE [None]
